FAERS Safety Report 6819846 (Version 3)
Quarter: 2020Q3

REPORT INFORMATION
  Report Type: Report from Study
  Country: IN (occurrence: IN)
  Receive Date: 20081124
  Receipt Date: 20100219
  Transmission Date: 20201105
  Serious: Yes (Hospitalization, Other)
  Sender: FDA-Public Use
  Company Number: IN-WYE-H06522508

PATIENT
  Age: 33 Year
  Sex: Female
  Weight: 48 kg

DRUGS (5)
  1. GLEEVEC [Suspect]
     Active Substance: IMATINIB MESYLATE
     Indication: CHRONIC MYELOID LEUKAEMIA
     Route: 048
     Dates: start: 20080919, end: 20081017
  2. GLEEVEC [Suspect]
     Active Substance: IMATINIB MESYLATE
     Route: 048
     Dates: start: 20081107
  3. RABEPRAZOLE [Concomitant]
     Active Substance: RABEPRAZOLE
     Indication: GASTRITIS
     Dosage: NOT PROVIDED
     Route: 065
     Dates: start: 20081016, end: 20081016
  4. MAGNESIUM ALUMINUM SILICATE\MAGNESIUM HYDROXIDE [Concomitant]
     Indication: GASTRITIS
     Dosage: NOT PROVIDED
     Route: 065
     Dates: start: 20081016, end: 20081018
  5. DOMPERIDONE [Concomitant]
     Active Substance: DOMPERIDONE
     Indication: GASTRITIS
     Dosage: NOT PROVIDED
     Route: 065
     Dates: start: 20081016, end: 20081016

REACTIONS (2)
  - Dengue fever [Recovered/Resolved]
  - Anaemia [Recovered/Resolved]

NARRATIVE: CASE EVENT DATE: 20081016
